FAERS Safety Report 5629311-9 (Version None)
Quarter: 2008Q1

REPORT INFORMATION
  Report Type: 
  Country: None (occurrence: None)
  Receive Date: 20080215
  Receipt Date: 20080215
  Transmission Date: 20080703
  Serious: No
  Sender: FDA-Public Use
  Company Number: None

PATIENT
  Age: 45 Year
  Sex: Female

DRUGS (1)
  1. MOLOXICAM [Suspect]
     Dosage: 15 MG DAILY PO
     Route: 048
     Dates: start: 20061201, end: 20070201

REACTIONS (2)
  - DEVICE INEFFECTIVE [None]
  - VOMITING [None]
